FAERS Safety Report 5053400-3 (Version None)
Quarter: 2006Q2

REPORT INFORMATION
  Report Type: 
  Country: None (occurrence: None)
  Receive Date: 20060614
  Receipt Date: 20060224
  Transmission Date: 20061013
  Serious: Yes (Other)
  Sender: FDA-Public Use
  Company Number: 436562

PATIENT
  Sex: Female

DRUGS (11)
  1. BONIVA [Suspect]
     Indication: DRUG USE FOR UNKNOWN INDICATION
     Dosage: ORAL
     Route: 048
  2. BONIVA [Suspect]
     Indication: OSTEOPOROSIS
     Dosage: 1 PER MONTH
     Dates: start: 20060328
  3. PROTONIX [Concomitant]
  4. SYNTHROID [Concomitant]
  5. TRUXAL (CHLORPROTHIXENE) [Concomitant]
  6. NASONEX [Concomitant]
  7. ISTALOL (TIMOLOL) [Concomitant]
  8. LUMIGAN [Concomitant]
  9. ASPIRIN [Concomitant]
  10. ACETAMINOPHEN [Concomitant]
  11. VESICARE [Concomitant]

REACTIONS (7)
  - ABDOMINAL DISTENSION [None]
  - ABDOMINAL PAIN UPPER [None]
  - ANOREXIA [None]
  - CHEST DISCOMFORT [None]
  - CONSTIPATION [None]
  - ERUCTATION [None]
  - INFLUENZA LIKE ILLNESS [None]
